FAERS Safety Report 8901186 (Version 2)
Quarter: 2012Q4

REPORT INFORMATION
  Report Type: 
  Country: US (occurrence: US)
  Receive Date: 20121108
  Receipt Date: 20121126
  Transmission Date: 20130627
  Serious: Yes (Other)
  Sender: FDA-Public Use
  Company Number: US-FRI-1000040094

PATIENT
  Sex: Female
  Weight: 67 kg

DRUGS (7)
  1. VIIBRYD [Suspect]
     Indication: DEPRESSION
     Dosage: 10 mg
     Route: 048
     Dates: start: 20120612, end: 20120909
  2. VIIBRYD [Suspect]
     Indication: SCHIZOAFFECTIVE DISORDER
     Dosage: 20 mg
     Route: 048
     Dates: start: 20120910
  3. SEROQUEL [Concomitant]
     Dosage: 200 mg at bedtime
  4. KLONOPIN [Concomitant]
     Dosage: 0.5 mg twice daily and 1 mg at bedtime
  5. LISINOPRIL [Concomitant]
  6. NAPROSYN [Concomitant]
  7. AMLODIPINE [Concomitant]

REACTIONS (2)
  - Suicidal ideation [Recovered/Resolved]
  - Diarrhoea [Recovered/Resolved]
